FAERS Safety Report 5515005-7 (Version None)
Quarter: 2007Q4

REPORT INFORMATION
  Report Type: 
  Country: None (occurrence: None)
  Receive Date: 20071113
  Receipt Date: 20061110
  Transmission Date: 20080405
  Serious: No
  Sender: FDA-Public Use
  Company Number: A0627058A

PATIENT
  Age: 68 Year
  Sex: Female

DRUGS (5)
  1. COREG [Suspect]
     Indication: DRUG USE FOR UNKNOWN INDICATION
     Route: 048
     Dates: start: 20060801
  2. LOTENSIN [Concomitant]
  3. SYNTHROID [Concomitant]
  4. LIPITOR [Concomitant]
     Dates: start: 20061110
  5. IBUPROFEN [Concomitant]

REACTIONS (1)
  - MYALGIA [None]
